FAERS Safety Report 25852872 (Version 1)
Quarter: 2025Q3

REPORT INFORMATION
  Report Type: Spontaneous
  Country: US (occurrence: US)
  Receive Date: 20250926
  Receipt Date: 20250926
  Transmission Date: 20251020
  Serious: Yes (Other)
  Sender: PFIZER
  Company Number: US-PFIZER INC-202500191929

PATIENT

DRUGS (2)
  1. PALBOCICLIB [Suspect]
     Active Substance: PALBOCICLIB
  2. CAPIVASERTIB [Suspect]
     Active Substance: CAPIVASERTIB

REACTIONS (3)
  - Gastrointestinal toxicity [Unknown]
  - Hyperglycaemia [Unknown]
  - Eating disorder [Unknown]
